FAERS Safety Report 5599723-0 (Version None)
Quarter: 2008Q1

REPORT INFORMATION
  Report Type: 
  Country: None (occurrence: None)
  Receive Date: 20080123
  Receipt Date: 20080118
  Transmission Date: 20080703
  Serious: Yes (Death)
  Sender: FDA-Public Use
  Company Number: PHHY2007CA01058

PATIENT
  Age: 39 Year
  Sex: Male

DRUGS (4)
  1. CLOZARIL [Suspect]
     Indication: SCHIZOPHRENIA
     Dosage: UNK, UNK
     Route: 048
     Dates: start: 20060608
  2. EFFEXOR XR [Concomitant]
     Dosage: 225 MG/DAY
  3. HALDOL [Concomitant]
     Dosage: 2 MG/DAY X 6 WEEKS
  4. DIAZEPAM [Concomitant]

REACTIONS (1)
  - DEATH [None]
